FAERS Safety Report 4936315-8 (Version None)
Quarter: 2006Q1

REPORT INFORMATION
  Report Type: 
  Country: None (occurrence: None)
  Receive Date: 20060127
  Receipt Date: 20051223
  Transmission Date: 20060701
  Serious: Yes (Other)
  Sender: FDA-Public Use
  Company Number: 2005158143

PATIENT
  Age: 38 Year
  Sex: Female

DRUGS (2)
  1. LYRICA [Suspect]
     Indication: DIABETIC NEUROPATHY
     Dosage: 50 MG, (50 MG,1 IN 1 D)
  2. LYRICA [Suspect]
     Indication: PAIN IN EXTREMITY
     Dosage: 50 MG, (50 MG,1 IN 1 D)

REACTIONS (2)
  - HYPOAESTHESIA [None]
  - INSOMNIA [None]
